FAERS Safety Report 17527680 (Version 2)
Quarter: 2020Q1

REPORT INFORMATION
  Report Type: Spontaneous
  Country: CA (occurrence: CA)
  Receive Date: 20200311
  Receipt Date: 20200317
  Transmission Date: 20200409
  Serious: Yes (Hospitalization, Other)
  Sender: FDA-Public Use
  Company Number: CA-JNJFOC-20200241764

PATIENT
  Age: 21 Year
  Sex: Female
  Weight: 66 kg

DRUGS (18)
  1. REMICADE [Suspect]
     Active Substance: INFLIXIMAB
     Route: 042
  2. CALCIUM PANTOTHENATE [Concomitant]
     Active Substance: CALCIUM PANTOTHENATE
     Indication: PRODUCT USED FOR UNKNOWN INDICATION
     Route: 065
  3. IMURAN [Concomitant]
     Active Substance: AZATHIOPRINE
     Indication: PRODUCT USED FOR UNKNOWN INDICATION
  4. FOLIC ACID. [Concomitant]
     Active Substance: FOLIC ACID
     Indication: PRODUCT USED FOR UNKNOWN INDICATION
     Route: 065
  5. ASCORBIC ACID. [Concomitant]
     Active Substance: ASCORBIC ACID
     Indication: PRODUCT USED FOR UNKNOWN INDICATION
     Route: 065
  6. REMICADE [Suspect]
     Active Substance: INFLIXIMAB
     Indication: PRODUCT USED FOR UNKNOWN INDICATION
     Route: 042
  7. DILAUDID [Concomitant]
     Active Substance: HYDROMORPHONE HYDROCHLORIDE
     Indication: PRODUCT USED FOR UNKNOWN INDICATION
     Route: 065
  8. ACETAMINOPHEN. [Concomitant]
     Active Substance: ACETAMINOPHEN
     Indication: PRODUCT USED FOR UNKNOWN INDICATION
     Route: 065
  9. METHOTREXATE. [Concomitant]
     Active Substance: METHOTREXATE
     Indication: PRODUCT USED FOR UNKNOWN INDICATION
     Route: 065
  10. PREDNISONE. [Concomitant]
     Active Substance: PREDNISONE
     Indication: PRODUCT USED FOR UNKNOWN INDICATION
     Route: 065
  11. HUMIRA [Concomitant]
     Active Substance: ADALIMUMAB
     Indication: CROHN^S DISEASE
     Route: 058
  12. STELARA [Suspect]
     Active Substance: USTEKINUMAB
     Indication: PRODUCT USED FOR UNKNOWN INDICATION
     Route: 058
  13. REMICADE [Suspect]
     Active Substance: INFLIXIMAB
     Route: 042
  14. PLAQUENIL                          /00072602/ [Concomitant]
     Active Substance: HYDROXYCHLOROQUINE DIPHOSPHATE
     Indication: PRODUCT USED FOR UNKNOWN INDICATION
     Route: 065
  15. PANTOLOC                           /01263204/ [Concomitant]
     Active Substance: PANTOPRAZOLE SODIUM
     Indication: PRODUCT USED FOR UNKNOWN INDICATION
     Route: 065
  16. COLESTID [Suspect]
     Active Substance: COLESTIPOL HYDROCHLORIDE
     Indication: PRODUCT USED FOR UNKNOWN INDICATION
     Route: 065
  17. VEDOLIZUMAB [Suspect]
     Active Substance: VEDOLIZUMAB
     Indication: PRODUCT USED FOR UNKNOWN INDICATION
     Route: 042
  18. LOMOTIL [Concomitant]
     Active Substance: ATROPINE SULFATE\DIPHENOXYLATE HYDROCHLORIDE
     Indication: PRODUCT USED FOR UNKNOWN INDICATION
     Route: 065

REACTIONS (33)
  - Cholangitis sclerosing [Unknown]
  - Oesophageal ulcer [Unknown]
  - Rectal fissure [Unknown]
  - Fistula [Unknown]
  - Abdominal pain [Unknown]
  - Nausea [Unknown]
  - Fatigue [Unknown]
  - Intestinal obstruction [Unknown]
  - Synovitis [Unknown]
  - Gastrointestinal ulcer [Unknown]
  - Dehydration [Unknown]
  - Anaphylactic reaction [Unknown]
  - Therapeutic product effect incomplete [Unknown]
  - Intestinal resection [Unknown]
  - Rectal haemorrhage [Unknown]
  - Oesophageal pain [Unknown]
  - Abscess [Unknown]
  - Dyspnoea [Unknown]
  - Vomiting [Unknown]
  - Arthritis [Unknown]
  - Feeding intolerance [Unknown]
  - Pyrexia [Unknown]
  - Decreased appetite [Unknown]
  - Erythema [Unknown]
  - Pain in extremity [Unknown]
  - Drug hypersensitivity [Unknown]
  - Drug ineffective [Unknown]
  - Dermatitis exfoliative generalised [Unknown]
  - Haematochezia [Unknown]
  - Tachycardia [Unknown]
  - Throat tightness [Unknown]
  - Mucous stools [Unknown]
  - Diarrhoea [Unknown]
